FAERS Safety Report 18269583 (Version 3)
Quarter: 2020Q4

REPORT INFORMATION
  Report Type: Spontaneous
  Country: AT (occurrence: AT)
  Receive Date: 20200915
  Receipt Date: 20201209
  Transmission Date: 20210113
  Serious: Yes (Hospitalization)
  Sender: FDA-Public Use
  Company Number: AT-PFIZER INC-2020328884

PATIENT
  Age: 48 Year
  Sex: Male

DRUGS (9)
  1. IVACORLAN [Suspect]
     Active Substance: IVABRADINE OXALATE
     Indication: BLOOD PRESSURE INCREASED
     Dosage: 5 MG, 2X/DAY (1/0/1/0)
     Dates: start: 20200620, end: 20200731
  2. CONCOR [Suspect]
     Active Substance: BISOPROLOL FUMARATE
     Indication: HEART RATE INCREASED
  3. EFECTIN ER [Suspect]
     Active Substance: VENLAFAXINE HYDROCHLORIDE
     Dosage: 150 MG, 1X/DAY (1/0/0/0)
     Dates: end: 202008
  4. CONCOR [Suspect]
     Active Substance: BISOPROLOL FUMARATE
     Indication: HYPERTENSION
     Dosage: 5 MG, 2X/DAY (1/0/1/0  )
     Dates: end: 20200619
  5. LYRICA [Suspect]
     Active Substance: PREGABALIN
     Indication: ANXIETY DISORDER
     Dosage: 75 MG, 3X/DAY (1/1/1/0)
     Dates: end: 202008
  6. BISOPROLOL [Suspect]
     Active Substance: BISOPROLOL
     Indication: HEART RATE INCREASED
  7. MIRTEL [MIRTAZAPINE] [Suspect]
     Active Substance: MIRTAZAPINE
     Dosage: 30 MG, 1X/DAY (0/0/0/1)
     Dates: end: 202006
  8. BISOPROLOL [Suspect]
     Active Substance: BISOPROLOL
     Indication: HYPERTENSION
     Dosage: UNK
  9. RIVACOR [Suspect]
     Active Substance: BISOPROLOL FUMARATE
     Indication: BLOOD PRESSURE INCREASED
     Dosage: UNK

REACTIONS (6)
  - Blister [Recovering/Resolving]
  - Rash [Recovering/Resolving]
  - Drug eruption [Recovering/Resolving]
  - Skin disorder [Recovering/Resolving]
  - Eczema [Recovering/Resolving]
  - Skin exfoliation [Recovering/Resolving]

NARRATIVE: CASE EVENT DATE: 2020
